FAERS Safety Report 6633701-5 (Version None)
Quarter: 2010Q1

REPORT INFORMATION
  Report Type: 
  Country: None (occurrence: None)
  Receive Date: 20100314
  Receipt Date: 20100304
  Transmission Date: 20100710
  Serious: Yes (Hospitalization)
  Sender: FDA-Public Use
  Company Number: US-BRISTOL-MYERS SQUIBB COMPANY-15006232

PATIENT
  Age: 17 Year
  Sex: Male

DRUGS (2)
  1. ABILIFY [Suspect]
     Dosage: 1DF- 2MG FOR 2D, 5MG FOR 2D, TITRATED TO 10MG 2D
  2. WELLBUTRIN [Suspect]

REACTIONS (3)
  - ALCOHOL WITHDRAWAL SYNDROME [None]
  - DELUSION [None]
  - WITHDRAWAL SYNDROME [None]
